FAERS Safety Report 5073205-7 (Version None)
Quarter: 2006Q3

REPORT INFORMATION
  Report Type: 
  Country: None (occurrence: None)
  Receive Date: 20060802
  Receipt Date: 20060721
  Transmission Date: 20061208
  Serious: Yes (Hospitalization)
  Sender: FDA-Public Use
  Company Number: 2006VX000541

PATIENT
  Age: 50 Year
  Sex: Male
  Weight: 102.0593 kg

DRUGS (4)
  1. INTERFERON ALFACON-1 [Suspect]
     Indication: HEPATITIS C
     Dosage: 15 UG; QD; SC
     Route: 058
     Dates: start: 20060401
  2. RIBAVIRIN [Concomitant]
  3. ULTRAM [Concomitant]
  4. WARFARIN SODIUM [Concomitant]

REACTIONS (10)
  - ASTHENIA [None]
  - ATRIAL FIBRILLATION [None]
  - COAGULOPATHY [None]
  - FATIGUE [None]
  - HEART RATE IRREGULAR [None]
  - INJECTION SITE ERYTHEMA [None]
  - INJECTION SITE PAIN [None]
  - INSOMNIA [None]
  - PAIN IN EXTREMITY [None]
  - WEIGHT DECREASED [None]
